FAERS Safety Report 18735517 (Version 1)
Quarter: 2021Q1

REPORT INFORMATION
  Report Type: Spontaneous
  Country: FR (occurrence: FR)
  Receive Date: 20210113
  Receipt Date: 20210113
  Transmission Date: 20210419
  Serious: Yes (Hospitalization)
  Sender: FDA-Public Use
  Company Number: FR-TEVA-2021-FR-1867625

PATIENT
  Age: 56 Year
  Sex: Female
  Weight: 69 kg

DRUGS (3)
  1. THIOCOLCHICOSIDE ZENTIVA 4 MG, COMPRIME [Suspect]
     Active Substance: THIOCOLCHICOSIDE
     Indication: PAIN
     Dosage: 4 DOSAGE FORMS
     Route: 048
     Dates: start: 20201201
  2. SOLUPRED 20 MG, COMPRIME ORODISPERSIBLE [Suspect]
     Active Substance: PREDNISOLONE SODIUM METAZOATE
     Indication: PAIN
     Dosage: 3.5 DOSAGE FORMS
     Route: 048
     Dates: start: 20201201
  3. VALACICLOVIR [Suspect]
     Active Substance: VALACYCLOVIR HYDROCHLORIDE
     Indication: HERPES SIMPLEX
     Dosage: 1000 MG
     Route: 048
     Dates: start: 20201208

REACTIONS (2)
  - Cholestasis [Recovering/Resolving]
  - Hepatocellular injury [Recovering/Resolving]

NARRATIVE: CASE EVENT DATE: 20201209
